FAERS Safety Report 18519000 (Version 1)
Quarter: 2020Q4

REPORT INFORMATION
  Report Type: Spontaneous
  Country: JP (occurrence: JP)
  Receive Date: 20201118
  Receipt Date: 20201118
  Transmission Date: 20210114
  Serious: Yes (Death)
  Sender: FDA-Public Use
  Company Number: JP-JNJFOC-20201006163

PATIENT
  Age: 2 Month
  Sex: Female

DRUGS (3)
  1. UPTRAVI [Suspect]
     Active Substance: SELEXIPAG
     Indication: PULMONARY HYPERTENSION
     Route: 048
     Dates: start: 20200916
  2. OPSUMIT [Concomitant]
     Active Substance: MACITENTAN
     Indication: TRICUSPID VALVE INCOMPETENCE
  3. REVATIO [Concomitant]
     Active Substance: SILDENAFIL CITRATE
     Indication: TRICUSPID VALVE INCOMPETENCE

REACTIONS (3)
  - Off label use [Unknown]
  - Product use issue [Unknown]
  - Condition aggravated [Fatal]

NARRATIVE: CASE EVENT DATE: 2020
